FAERS Safety Report 10494310 (Version 1)
Quarter: 2014Q3

REPORT INFORMATION
  Report Type: Spontaneous
  Country: US (occurrence: None)
  Receive Date: 20140815
  Receipt Date: 20140815
  Transmission Date: 20150326
  Serious: Yes (Other)
  Sender: FDA-Public Use
  Company Number: ADR-2014-00055

PATIENT
  Age: 57 Year
  Sex: Female

DRUGS (5)
  1. BUPIVACAINE [Suspect]
     Active Substance: BUPIVACAINE
     Route: 037
  2. OXYCODONE [Suspect]
     Active Substance: OXYCODONE
     Route: 048
  3. BACLOFEN INTRATHECAL [Suspect]
     Active Substance: BACLOFEN
     Indication: PAIN
  4. FENTANYL INTRATHECAL [Suspect]
     Active Substance: FENTANYL
  5. IBUPROFEN. [Suspect]
     Active Substance: IBUPROFEN
     Route: 048

REACTIONS (4)
  - Pain [None]
  - Medical device discomfort [None]
  - Somnolence [None]
  - No therapeutic response [None]

NARRATIVE: CASE EVENT DATE: 20131015
